FAERS Safety Report 12082602 (Version 1)
Quarter: 2016Q1

REPORT INFORMATION
  Report Type: Spontaneous
  Country: FR (occurrence: FR)
  Receive Date: 20160217
  Receipt Date: 20160217
  Transmission Date: 20160526
  Serious: Yes (Hospitalization)
  Sender: FDA-Public Use
  Company Number: FR-009507513-1602FRA006816

PATIENT
  Age: 93 Year
  Sex: Male

DRUGS (20)
  1. AUGMENTIN [Suspect]
     Active Substance: AMOXICILLIN\CLAVULANATE POTASSIUM
     Indication: OROPHARYNGEAL PAIN
     Dosage: 1 DF, TID (ALSO REPORTED AS 3 DF, QD)
     Route: 048
     Dates: start: 20151214, end: 20151217
  2. AUGMENTIN [Suspect]
     Active Substance: AMOXICILLIN\CLAVULANATE POTASSIUM
     Dosage: 1 DF, TID (ALSO REPORTED AS 3 DF, QD)
     Route: 048
     Dates: start: 20151230, end: 20160118
  3. TRIATEC (RAMIPRIL) [Suspect]
     Active Substance: RAMIPRIL
     Dosage: UNK
     Route: 048
     Dates: start: 20151231, end: 20160118
  4. AMOXICILLIN. [Suspect]
     Active Substance: AMOXICILLIN
     Indication: OROPHARYNGEAL PAIN
     Dosage: UNK
     Route: 048
     Dates: start: 20151207, end: 20151214
  5. KARDEGIC [Concomitant]
     Active Substance: ASPIRIN LYSINE
     Dosage: UNK
     Dates: end: 20160118
  6. KARDEGIC [Concomitant]
     Active Substance: ASPIRIN LYSINE
     Dosage: UNK
     Dates: start: 20160121
  7. TIORFAN [Suspect]
     Active Substance: RACECADOTRIL
     Dosage: UNK, IF NEEDED
     Route: 048
     Dates: start: 20151214, end: 20151218
  8. TIORFAN [Suspect]
     Active Substance: RACECADOTRIL
     Dosage: UNK, IF NEEDED
     Route: 048
     Dates: start: 20151230, end: 20160118
  9. LEVOTHYROX [Concomitant]
     Active Substance: LEVOTHYROXINE
     Dosage: UNK
     Dates: start: 20160121
  10. CRESTOR [Concomitant]
     Active Substance: ROSUVASTATIN CALCIUM
     Dosage: UNK
     Dates: end: 20160118
  11. LEVOTHYROX [Concomitant]
     Active Substance: LEVOTHYROXINE
     Dosage: UNK
     Dates: end: 20160118
  12. ORELOX [Suspect]
     Active Substance: CEFPODOXIME
     Indication: OROPHARYNGEAL PAIN
     Dosage: UNK
     Route: 048
     Dates: start: 20151217, end: 20151223
  13. ODRIK [Concomitant]
     Active Substance: TRANDOLAPRIL
     Dosage: UNK
     Dates: end: 20160118
  14. AMLOR [Concomitant]
     Active Substance: AMLODIPINE BESYLATE
     Dosage: UNK
     Dates: end: 20160118
  15. ULTRA LEVURE [Concomitant]
     Active Substance: SACCHAROMYCES CEREVISIAE
     Dosage: UNK
     Dates: start: 20151214, end: 20160118
  16. GLICLAZIDE [Concomitant]
     Active Substance: GLICLAZIDE
     Dosage: UNK
     Dates: end: 20160118
  17. EXELON [Concomitant]
     Active Substance: RIVASTIGMINE TARTRATE
     Dosage: UNK
     Dates: end: 20151231
  18. NORSET [Suspect]
     Active Substance: MIRTAZAPINE
     Indication: ANXIETY
     Dosage: UNK
     Route: 048
     Dates: start: 20151231, end: 20160118
  19. OMEPRAZOLE. [Suspect]
     Active Substance: OMEPRAZOLE
     Dosage: 20 KIU, QD (FREQUENCY ALSO REPORTED AS NEEDED)
     Route: 048
     Dates: start: 20151214, end: 20151218
  20. OMEPRAZOLE. [Suspect]
     Active Substance: OMEPRAZOLE
     Dosage: 20 KIU, QD (FREQUENCY ALSO REPORTED AS NEEDED)
     Route: 048
     Dates: start: 20151230, end: 20160118

REACTIONS (2)
  - Hepatocellular injury [Recovering/Resolving]
  - Cholestasis [Recovering/Resolving]

NARRATIVE: CASE EVENT DATE: 20160118
